FAERS Safety Report 8301476-X (Version None)
Quarter: 2012Q2

REPORT INFORMATION
  Report Type: 
  Country: None (occurrence: None)
  Receive Date: 20120420
  Receipt Date: 20120411
  Transmission Date: 20120825
  Serious: Yes (Life-Threatening, Hospitalization)
  Sender: FDA-Public Use
  Company Number: PHHY2012ES032960

PATIENT
  Age: 31 Year
  Sex: Male

DRUGS (6)
  1. LYRICA [Interacting]
     Dosage: 30 G, UNK
     Route: 048
  2. SEROQUEL [Interacting]
     Dosage: 13.6 G, UNK
     Route: 048
  3. LORMETAZEPAM [Interacting]
     Dosage: 60 MG, UNK
     Route: 048
  4. ETUMINA [Interacting]
     Dosage: 1.6 G, UNK
     Route: 048
  5. FLUVOXAMINE MALEATE [Interacting]
     Dosage: 4.2 G, UNK
     Route: 048
  6. DIAZEPAM [Suspect]
     Dosage: 900 MG, UNK
     Route: 048

REACTIONS (4)
  - DRUG INTERACTION [None]
  - COMA [None]
  - INTENTIONAL OVERDOSE [None]
  - MYOCLONUS [None]
